FAERS Safety Report 8077596-4 (Version None)
Quarter: 2012Q1

REPORT INFORMATION
  Report Type: 
  Country: None (occurrence: None)
  Receive Date: 20120127
  Receipt Date: 20120123
  Transmission Date: 20120608
  Serious: Yes (Disabling, Other)
  Sender: FDA-Public Use
  Company Number: US-PFIZER INC-2012018776

PATIENT
  Sex: Female
  Weight: 81.633 kg

DRUGS (21)
  1. PRILOSEC [Concomitant]
     Dosage: 20 MG, 2X/DAY
  2. TRAMADOL [Concomitant]
     Dosage: 50 MG
  3. DICYCLOMINE [Concomitant]
     Dosage: 20 MG, 3X/DAY
  4. VITAMIN D [Concomitant]
     Dosage: UNK
  5. METFORMIN [Concomitant]
     Indication: DIABETES MELLITUS
     Dosage: 1000 MG, 2X/DAY
  6. ALLEGRA [Concomitant]
     Indication: HYPERSENSITIVITY
     Dosage: 180 MG, AS NEEDED
  7. CALCIUM [Concomitant]
     Dosage: UNK
  8. NEURONTIN [Suspect]
     Indication: EXOSTOSIS
     Dosage: 300 MG, 5-6 TIMES A DAY
  9. MULTI-VITAMINS [Concomitant]
     Dosage: UNK
  10. LIPITOR [Suspect]
     Indication: BLOOD CHOLESTEROL ABNORMAL
     Dosage: 40 MG, DAILY
  11. NEURONTIN [Suspect]
     Indication: BACK PAIN
     Dosage: 300 MG, 2X/DAY
  12. NEURONTIN [Suspect]
     Dosage: UNK
  13. CELEBREX [Suspect]
     Indication: INFLAMMATION
     Dosage: 200 MG, 2X/DAY
     Dates: start: 19990101
  14. LASIX [Concomitant]
     Dosage: 40 MG
  15. ENALAPRIL [Concomitant]
     Dosage: 5 MG, DAILY
  16. CELEBREX [Suspect]
     Dosage: UNK
  17. PROZAC [Concomitant]
     Dosage: 40 MG, DAILY
  18. FENOFIBRATE [Concomitant]
     Indication: BLOOD CHOLESTEROL ABNORMAL
     Dosage: 160 MG, DAILY
  19. DURAGESIC-100 [Concomitant]
     Indication: PAIN
     Dosage: UNK DOSE, EVERY 72 HOURS
     Route: 062
  20. VITAMIN E [Concomitant]
     Dosage: UNK
  21. FISH OIL [Concomitant]
     Dosage: UNK

REACTIONS (6)
  - MENTAL IMPAIRMENT [None]
  - GASTRITIS EROSIVE [None]
  - ABDOMINAL PAIN UPPER [None]
  - MEMORY IMPAIRMENT [None]
  - GASTRIC ULCER [None]
  - COLD-STIMULUS HEADACHE [None]
